FAERS Safety Report 10021000 (Version 1)
Quarter: 2014Q1

REPORT INFORMATION
  Report Type: Spontaneous
  Country: BR (occurrence: None)
  Receive Date: 20140313
  Receipt Date: 20140313
  Transmission Date: 20141002
  Serious: Yes (Other)
  Sender: FDA-Public Use
  Company Number: AUR-APL-2014-02717

PATIENT
  Age: 67 Year
  Sex: 0

DRUGS (2)
  1. ATENOLOL (ATENOLOL) [Suspect]
     Indication: HYPERTENSION
  2. LOSARTAN (LOSARTAN) [Suspect]
     Indication: HYPERTENSION

REACTIONS (2)
  - Dizziness [None]
  - Hypertension [None]
